FAERS Safety Report 19218358 (Version 1)
Quarter: 2021Q2

REPORT INFORMATION
  Report Type: Spontaneous
  Country: DE (occurrence: DE)
  Receive Date: 20210505
  Receipt Date: 20210505
  Transmission Date: 20210717
  Serious: Yes (Life-Threatening, Hospitalization, Other)
  Sender: FDA-Public Use
  Company Number: DE-ACCORD-224119

PATIENT
  Age: 7 Year
  Sex: Female
  Weight: 17 kg

DRUGS (5)
  1. VIGABATRIN. [Suspect]
     Active Substance: VIGABATRIN
     Indication: AUTISM SPECTRUM DISORDER
  2. LAMOTRIGINE. [Suspect]
     Active Substance: LAMOTRIGINE
     Indication: EPILEPSY
  3. MELATONIN [Concomitant]
     Active Substance: MELATONIN
     Indication: AUTISM SPECTRUM DISORDER
  4. LEVETIRACETAM. [Suspect]
     Active Substance: LEVETIRACETAM
     Indication: EPILEPSY
  5. OMEPRAZOLE. [Concomitant]
     Active Substance: OMEPRAZOLE

REACTIONS (4)
  - Seizure [Unknown]
  - Anticonvulsant drug level decreased [Unknown]
  - Pneumonia [Unknown]
  - Status epilepticus [Unknown]

NARRATIVE: CASE EVENT DATE: 20181028
